FAERS Safety Report 5191762-7 (Version None)
Quarter: 2006Q4

REPORT INFORMATION
  Report Type: 
  Country: None (occurrence: None)
  Receive Date: 20061219
  Receipt Date: 20061204
  Transmission Date: 20070319
  Serious: Yes (Other)
  Sender: FDA-Public Use
  Company Number: FR-2006-005737

PATIENT
  Age: 31 Year
  Sex: Female

DRUGS (2)
  1. MIRENA [Suspect]
     Indication: CONTRACEPTION
     Dosage: 20 UG/DAY, CONT, INTRA-UTERINE
     Route: 015
     Dates: start: 20060301
  2. (PHENOBARBITAL, CAFFEINE) 150MG [Suspect]
     Dosage: ORAL
     Route: 048
     Dates: start: 19990101

REACTIONS (2)
  - DRUG INTERACTION [None]
  - MALAISE [None]
